FAERS Safety Report 5243279-9 (Version None)
Quarter: 2007Q1

REPORT INFORMATION
  Report Type: 
  Country: None (occurrence: None)
  Receive Date: 20070221
  Receipt Date: 20070209
  Transmission Date: 20070707
  Serious: Yes (Life-Threatening)
  Sender: FDA-Public Use
  Company Number: JP-PFIZER INC-2007011669

PATIENT
  Age: 55 Year
  Sex: Male

DRUGS (11)
  1. ZYVOX [Suspect]
     Indication: PNEUMONIA STAPHYLOCOCCAL
     Route: 042
     Dates: start: 20070207, end: 20070208
  2. VANCOMYCIN HYDROCHLORIDE [Concomitant]
     Route: 042
  3. ARBEKACIN SULFATE [Concomitant]
     Route: 042
  4. RIVOTRIL [Concomitant]
     Route: 048
  5. ALUMINIUM HYDR GEL W/MAGNESIUM HYDROXIDE [Concomitant]
     Route: 048
  6. TPN [Concomitant]
  7. NATEGLINIDE [Concomitant]
     Route: 048
  8. BASEN [Concomitant]
     Route: 048
  9. TAKEPRON [Concomitant]
     Route: 048
  10. ENALAPRIL MALEATE [Concomitant]
     Route: 048
  11. NORVASC [Concomitant]
     Route: 048

REACTIONS (3)
  - BLOOD CREATINE PHOSPHOKINASE INCREASED [None]
  - HEPATIC ENZYME INCREASED [None]
  - MYOCLONIC EPILEPSY [None]
